FAERS Safety Report 6550478-2 (Version None)
Quarter: 2010Q1

REPORT INFORMATION
  Report Type: 
  Country: None (occurrence: None)
  Receive Date: 20100125
  Receipt Date: 20100118
  Transmission Date: 20100710
  Serious: Yes (Death, Hospitalization)
  Sender: FDA-Public Use
  Company Number: A0840818A

PATIENT
  Age: 93 Year
  Sex: Female

DRUGS (2)
  1. AVANDIA [Suspect]
     Indication: TYPE 2 DIABETES MELLITUS
     Dosage: 4MG PER DAY
     Route: 048
     Dates: start: 20030318, end: 20070112
  2. AVANDAMET [Suspect]
     Indication: TYPE 2 DIABETES MELLITUS
     Route: 048
     Dates: start: 20070112, end: 20081003

REACTIONS (4)
  - CEREBROVASCULAR ACCIDENT [None]
  - HEART INJURY [None]
  - PNEUMONIA [None]
  - RESPIRATORY FAILURE [None]
